FAERS Safety Report 16516972 (Version 1)
Quarter: 2019Q3

REPORT INFORMATION
  Report Type: Spontaneous
  Country: GB (occurrence: GB)
  Receive Date: 20190702
  Receipt Date: 20190702
  Transmission Date: 20191004
  Serious: Yes (Other)
  Sender: FDA-Public Use
  Company Number: GB-ABBVIE-19K-167-2839995-00

PATIENT
  Age: 46 Year
  Sex: Female

DRUGS (1)
  1. ADALIMUMAB [Suspect]
     Active Substance: ADALIMUMAB
     Indication: PSORIASIS
     Route: 058
     Dates: start: 20190506, end: 20190603

REACTIONS (2)
  - Rash papular [Recovering/Resolving]
  - Pharyngeal erythema [Recovering/Resolving]

NARRATIVE: CASE EVENT DATE: 20190603
